FAERS Safety Report 5309213-8 (Version None)
Quarter: 2007Q2

REPORT INFORMATION
  Report Type: 
  Country: None (occurrence: None)
  Receive Date: 20070423
  Receipt Date: 20070404
  Transmission Date: 20071010
  Serious: Yes (Disabling)
  Sender: FDA-Public Use
  Company Number: DSA_29656_2007

PATIENT
  Sex: Female

DRUGS (3)
  1. LORAZEPAM [Suspect]
     Indication: NAUSEA
     Dosage: (1 DF ORAL)
     Route: 048
     Dates: start: 20070126, end: 20070126
  2. LAPATINIB 1250 MG [Suspect]
     Indication: BREAST CANCER METASTATIC
     Dosage: (1250 MG QD ORAL)
     Route: 048
     Dates: start: 20070124
  3. CAPECITABINE 2000 MG/M2 [Suspect]
     Indication: BREAST CANCER METASTATIC
     Dosage: (2000 MG/M2 QD ORAL)
     Route: 048
     Dates: start: 20070124

REACTIONS (4)
  - FALL [None]
  - NAUSEA [None]
  - SOMNOLENCE [None]
  - UPPER LIMB FRACTURE [None]
